FAERS Safety Report 7054595-2 (Version None)
Quarter: 2010Q4

REPORT INFORMATION
  Report Type: 
  Country: None (occurrence: None)
  Receive Date: 20101020
  Receipt Date: 20101018
  Transmission Date: 20110411
  Serious: Yes (Hospitalization)
  Sender: FDA-Public Use
  Company Number: AT-BAYER-201042533GPV

PATIENT
  Age: 20 Month
  Sex: Male
  Weight: 14 kg

DRUGS (7)
  1. HELIXATE [Suspect]
     Indication: FACTOR VIII DEFICIENCY
     Route: 042
     Dates: start: 20091022, end: 20091023
  2. HELIXATE [Suspect]
     Route: 042
     Dates: start: 20091024, end: 20091027
  3. HELIXATE [Suspect]
     Route: 042
     Dates: start: 20091028, end: 20091029
  4. HELIXATE [Suspect]
     Dosage: 46 ED
     Route: 042
     Dates: start: 20091119, end: 20100630
  5. APCC [Concomitant]
     Dates: start: 20100701
  6. APCC [Concomitant]
     Dates: end: 20101001
  7. APCC [Concomitant]
     Dates: start: 20101002, end: 20101006

REACTIONS (4)
  - COUGH [None]
  - FACTOR VIII INHIBITION [None]
  - HAEMORRHAGE [None]
  - RASH [None]
